FAERS Safety Report 8044522-3 (Version None)
Quarter: 2012Q1

REPORT INFORMATION
  Report Type: 
  Country: None (occurrence: None)
  Receive Date: 20120113
  Receipt Date: 20111214
  Transmission Date: 20120608
  Serious: No
  Sender: FDA-Public Use
  Company Number: US-TEVA-313469USA

PATIENT
  Sex: Female

DRUGS (1)
  1. TRIAMCINOLONE [Suspect]
     Route: 045

REACTIONS (4)
  - DRUG INEFFECTIVE [None]
  - NASAL SEPTUM ULCERATION [None]
  - NASAL SEPTUM PERFORATION [None]
  - NASAL CONGESTION [None]
